FAERS Safety Report 16514079 (Version 1)
Quarter: 2019Q3

REPORT INFORMATION
  Report Type: Spontaneous
  Country: US (occurrence: US)
  Receive Date: 20190702
  Receipt Date: 20190702
  Transmission Date: 20191004
  Serious: No
  Sender: FDA-Public Use
  Company Number: US-TEVA-2019-US-1063180

PATIENT

DRUGS (1)
  1. CARBIDOPA AND LEVODOPA [Suspect]
     Active Substance: CARBIDOPA\LEVODOPA
     Dosage: EXTENDED RELEASE TABLETS.?FORM STRENGTH: 25/100, 1/2 TO FULL TABLET CRUSHED EVERY 11/2 HOURS
     Route: 065
     Dates: start: 2013

REACTIONS (3)
  - Fear [Unknown]
  - Wrong technique in product usage process [Unknown]
  - Dyspnoea [Unknown]
